FAERS Safety Report 9580210 (Version 1)
Quarter: 2013Q4

REPORT INFORMATION
  Report Type: Spontaneous
  Country: GB (occurrence: GB)
  Receive Date: 20131002
  Receipt Date: 20131002
  Transmission Date: 20140711
  Serious: Yes (Other)
  Sender: FDA-Public Use
  Company Number: GB-INCYTE CORPORATION-2013IN002211

PATIENT
  Sex: 0

DRUGS (1)
  1. JAKAVI [Suspect]
     Dosage: UNKNOWN
     Route: 065

REACTIONS (1)
  - Metabolic acidosis [Unknown]
